FAERS Safety Report 13031087 (Version 6)
Quarter: 2017Q2

REPORT INFORMATION
  Report Type: Spontaneous
  Country: TR (occurrence: TR)
  Receive Date: 20161215
  Receipt Date: 20170602
  Transmission Date: 20170830
  Serious: Yes (Hospitalization, Other)
  Sender: FDA-Public Use
  Company Number: TR-BAYER-2016-235028

PATIENT
  Sex: Female
  Weight: 98 kg

DRUGS (3)
  1. WARFARIN SODIUM. [Concomitant]
     Active Substance: WARFARIN SODIUM
     Indication: THROMBOSIS
     Dosage: UNK
     Dates: start: 2015
  2. ADEMPAS [Suspect]
     Active Substance: RIOCIGUAT
     Indication: PULMONARY HYPERTENSION
     Dosage: 2.5 MG, TID
     Route: 048
     Dates: start: 20160310
  3. ADEMPAS [Suspect]
     Active Substance: RIOCIGUAT
     Indication: PULMONARY THROMBOSIS

REACTIONS (16)
  - Dyspnoea [Recovered/Resolved]
  - Urinary incontinence [Not Recovered/Not Resolved]
  - Dry throat [None]
  - Thrombosis [None]
  - Dysphagia [None]
  - Bronchitis [Recovered/Resolved]
  - Bronchospasm [None]
  - Dyspnoea [None]
  - Cough [None]
  - Influenza [Recovered/Resolved]
  - Anal incontinence [Not Recovered/Not Resolved]
  - Dyspnoea [Recovered/Resolved]
  - Dysphonia [None]
  - Respiratory arrest [None]
  - Hypertension [None]
  - Cough [Recovered/Resolved]

NARRATIVE: CASE EVENT DATE: 20160329
